FAERS Safety Report 10013997 (Version 2)
Quarter: 2014Q2

REPORT INFORMATION
  Report Type: Spontaneous
  Country: US (occurrence: US)
  Receive Date: 20140317
  Receipt Date: 20140409
  Transmission Date: 20141212
  Serious: No
  Sender: FDA-Public Use
  Company Number: US-JNJFOC-20140303999

PATIENT
  Age: 41 Year
  Sex: Male
  Weight: 105.24 kg

DRUGS (2)
  1. INVEGA SUSTENNA [Suspect]
     Indication: SCHIZOPHRENIA
     Route: 030
     Dates: start: 20130130
  2. DEPAKOTE ER [Concomitant]
     Route: 048

REACTIONS (2)
  - Hallucination, auditory [Unknown]
  - Adverse drug reaction [Unknown]
